FAERS Safety Report 6733165-7 (Version None)
Quarter: 2010Q2

REPORT INFORMATION
  Report Type: 
  Country: None (occurrence: None)
  Receive Date: 20100520
  Receipt Date: 20100511
  Transmission Date: 20101027
  Serious: Yes (Hospitalization)
  Sender: FDA-Public Use
  Company Number: US-BIOGENIDEC-2010BI015589

PATIENT
  Sex: Female
  Weight: 52 kg

DRUGS (3)
  1. AVONEX [Suspect]
     Indication: MULTIPLE SCLEROSIS
     Route: 030
     Dates: start: 19960101, end: 20000101
  2. AVONEX [Suspect]
     Route: 030
     Dates: start: 20080501
  3. COPAXONE [Concomitant]
     Dates: start: 20000101, end: 20080101

REACTIONS (4)
  - HEADACHE [None]
  - OVARIAN DISORDER [None]
  - SMEAR CERVIX ABNORMAL [None]
  - UTERINE HAEMORRHAGE [None]
